FAERS Safety Report 8585916-7 (Version None)
Quarter: 2012Q3

REPORT INFORMATION
  Report Type: 
  Country: None (occurrence: None)
  Receive Date: 20120802
  Receipt Date: 20120802
  Transmission Date: 20120928
  Serious: Yes (Hospitalization)
  Sender: FDA-Public Use
  Company Number: None

PATIENT
  Sex: Female
  Weight: 59.8748 kg

DRUGS (6)
  1. ANUCORT HC [Concomitant]
  2. CHOLESTYRAMINE [Concomitant]
  3. PROCTOFOAM HC [Concomitant]
  4. BENICAR [Concomitant]
  5. FENTANYL [Suspect]
  6. MIDAZOLAM HCL [Suspect]

REACTIONS (4)
  - RETCHING [None]
  - VOMITING [None]
  - NAUSEA [None]
  - HEADACHE [None]
